FAERS Safety Report 5295200-5 (Version None)
Quarter: 2007Q2

REPORT INFORMATION
  Report Type: 
  Country: None (occurrence: None)
  Receive Date: 20070412
  Receipt Date: 20070403
  Transmission Date: 20071010
  Serious: Yes (Other)
  Sender: FDA-Public Use
  Company Number: US-ABBOTT-07P-163-0363971-00

PATIENT
  Age: 11 Year
  Sex: Female

DRUGS (3)
  1. VALPROIC ACID [Suspect]
     Indication: PETIT MAL EPILEPSY
     Route: 042
  2. VALPROIC ACID [Suspect]
     Route: 048
  3. TOPIRAMATE [Concomitant]
     Indication: MIGRAINE
     Dosage: NOT REPORTED

REACTIONS (2)
  - CONVULSION [None]
  - PARADOXICAL DRUG REACTION [None]
